FAERS Safety Report 8520749-9 (Version None)
Quarter: 2012Q3

REPORT INFORMATION
  Report Type: 
  Country: None (occurrence: None)
  Receive Date: 20120719
  Receipt Date: 20120710
  Transmission Date: 20120928
  Serious: Yes (Other)
  Sender: FDA-Public Use
  Company Number: GB-JNJFOC-20120705830

PATIENT

DRUGS (3)
  1. FLUTICASONE PROPIONATE [Interacting]
     Indication: CYSTIC FIBROSIS
     Dosage: MEDIAN DOSE OF 500 MCG/DAY
     Route: 055
  2. ITRACONAZOLE [Suspect]
     Indication: CYSTIC FIBROSIS
     Route: 065
  3. CORTICOSTEROID UNSPECIFIED [Interacting]
     Indication: CYSTIC FIBROSIS
     Dosage: MEDIAN DOSE OF 500 MCG/DAY
     Route: 055

REACTIONS (2)
  - ADRENAL SUPPRESSION [None]
  - DRUG INTERACTION [None]
